FAERS Safety Report 23357406 (Version 4)
Quarter: 2024Q4

REPORT INFORMATION
  Report Type: Spontaneous
  Country: US (occurrence: US)
  Receive Date: 20240102
  Receipt Date: 20241028
  Transmission Date: 20250115
  Serious: Yes (Other)
  Sender: NOVARTIS
  Company Number: US-002147023-NVSC2023US276833

PATIENT
  Sex: Female
  Weight: 67.12 kg

DRUGS (8)
  1. KESIMPTA [Suspect]
     Active Substance: OFATUMUMAB
     Indication: Multiple sclerosis
     Dosage: 20 MG, QMO
     Route: 058
     Dates: start: 20240717
  2. AUBAGIO [Suspect]
     Active Substance: TERIFLUNOMIDE
     Indication: Multiple sclerosis
     Dosage: UNK
     Route: 065
  3. ALPRAZOLAM [Concomitant]
     Active Substance: ALPRAZOLAM
     Indication: Anxiety
     Dosage: 1 DOSAGE FORM, TID (TAKE 1/2 - 1 TABLET BY MOUTH THREE TIMES DAILY AS NEEDED)
     Route: 048
     Dates: start: 20231221
  4. BUSPIRONE [Concomitant]
     Active Substance: BUSPIRONE HYDROCHLORIDE
     Indication: Product used for unknown indication
     Dosage: 1 DOSAGE FORM, BID (TAKE 1 TABLET BY MOUTH TWICE A DAY)
     Route: 048
     Dates: start: 20240509
  5. ERGOCALCIFEROL [Concomitant]
     Active Substance: ERGOCALCIFEROL
     Indication: Product used for unknown indication
     Dosage: 1 DOSAGE FORM, QW 1250 MCG (50,000 UNIT) (TAKE 1 CAPSULE BY MOUTH WEEKLY)
     Route: 048
     Dates: start: 20240717
  6. MODAFINIL [Concomitant]
     Active Substance: MODAFINIL
     Indication: Product used for unknown indication
     Dosage: 1 DOSAGE FORM, QD (TAKE 1 TABLET EVERY DAY BY ORAL ROUTE AS NEEDED.)
     Route: 048
     Dates: start: 20240612
  7. VENLAFAXINE [Concomitant]
     Active Substance: VENLAFAXINE HYDROCHLORIDE
     Indication: Product used for unknown indication
     Dosage: 1 DOSAGE FORM, QD (TAKE 1 CAPSULE BY MOUTH EVERY DAY) (,AXTENDED RELEASE 24 HR)
     Route: 048
     Dates: start: 20240716
  8. VYVANSE [Concomitant]
     Active Substance: LISDEXAMFETAMINE DIMESYLATE
     Indication: Product used for unknown indication
     Dosage: 1 DOSAGE FORM, QD (TAKE 1 CAPSULE BY MOUTH EVERY DAY AS NEEDED)
     Route: 048
     Dates: start: 20240513

REACTIONS (5)
  - Livedo reticularis [Unknown]
  - Rash [Unknown]
  - Plasma cell myeloma [Unknown]
  - Autoimmune disorder [Unknown]
  - Hypergammaglobulinaemia benign monoclonal [Unknown]
